FAERS Safety Report 6829134-9 (Version None)
Quarter: 2010Q3

REPORT INFORMATION
  Report Type: 
  Country: None (occurrence: None)
  Receive Date: 20100709
  Receipt Date: 20100630
  Transmission Date: 20110219
  Serious: Yes (Hospitalization)
  Sender: FDA-Public Use
  Company Number: BR-AMGEN-QUU422856

PATIENT
  Age: 73 Year
  Sex: Female
  Weight: 68 kg

DRUGS (7)
  1. ENBREL [Suspect]
     Indication: RHEUMATOID ARTHRITIS
     Route: 058
     Dates: start: 20091026, end: 20100501
  2. FOLIC ACID [Concomitant]
     Dosage: UNSPECIFIED
  3. HYDROCHLOROTHIAZIDE [Concomitant]
     Dosage: UNSPECIFIED
  4. GLIBENCLAMIDE [Concomitant]
     Dosage: UNSPECIFIED
  5. CAPTOPRIL [Concomitant]
     Dosage: UNSPECIFIED
  6. PREDNISOLONE [Concomitant]
     Dosage: UNSPECIFIED
  7. CALCIUM CARBONATE [Concomitant]
     Dosage: UNSPECIFIED

REACTIONS (1)
  - BREAST CANCER [None]
